FAERS Safety Report 12909034 (Version 1)
Quarter: 2016Q4

REPORT INFORMATION
  Report Type: Spontaneous
  Country: US (occurrence: US)
  Receive Date: 20161103
  Receipt Date: 20161103
  Transmission Date: 20170207
  Serious: No
  Sender: FDA-Public Use
  Company Number: US-JAZZ-2016-US-016860

PATIENT
  Sex: Female

DRUGS (45)
  1. ANUSOL NOS [Concomitant]
     Active Substance: BALSAM PERU\BENZYL BENZOATE\BISMUTH HYDROXIDE\BISMUTH SUBGALLATE\HYDROCORTISONE ACETATE\ZINC OXIDE
  2. DEPLIN [Concomitant]
     Active Substance: LEVOMEFOLATE CALCIUM
  3. ZANAFLEX [Concomitant]
     Active Substance: TIZANIDINE HYDROCHLORIDE
  4. MEPHYTON [Concomitant]
     Active Substance: PHYTONADIONE
  5. VITAMIN B6 [Concomitant]
     Active Substance: PYRIDOXINE HYDROCHLORIDE
  6. XYREM [Suspect]
     Active Substance: SODIUM OXYBATE
     Dosage: 4 G, BID
     Route: 048
     Dates: start: 200905, end: 200906
  7. NYSTATIN. [Concomitant]
     Active Substance: NYSTATIN
  8. BACLOFEN. [Concomitant]
     Active Substance: BACLOFEN
  9. HYDROXYZINE HCL [Concomitant]
     Active Substance: HYDROXYZINE HYDROCHLORIDE
  10. MALARONE [Concomitant]
     Active Substance: ATOVAQUONE\PROGUANIL HYDROCHLORIDE
  11. ACETYLCYSTEINE. [Concomitant]
     Active Substance: ACETYLCYSTEINE
  12. CIMETIDINE [Concomitant]
     Active Substance: CIMETIDINE
  13. CYCLOBENZAPRINE [Concomitant]
     Active Substance: CYCLOBENZAPRINE
  14. METHADONE HCL [Concomitant]
     Active Substance: METHADONE HYDROCHLORIDE
  15. FLUDROCORTISONE [Concomitant]
     Active Substance: FLUDROCORTISONE
  16. LO LOESTRIN FE [Concomitant]
     Active Substance: ETHINYL ESTRADIOL\NORETHINDRONE ACETATE
  17. XYREM [Suspect]
     Active Substance: SODIUM OXYBATE
     Dosage: 4.25 G, BID
     Route: 048
     Dates: start: 201608
  18. RESTORIL [Concomitant]
     Active Substance: TEMAZEPAM
  19. DIAZEPAM. [Concomitant]
     Active Substance: DIAZEPAM
  20. PROBIOTIC [Concomitant]
     Active Substance: PROBIOTICS NOS
  21. REMERON [Concomitant]
     Active Substance: MIRTAZAPINE
  22. XYREM [Suspect]
     Active Substance: SODIUM OXYBATE
     Dosage: DOSE ADJUSTMENTS
     Route: 048
     Dates: start: 201608, end: 201608
  23. GABAPENTIN. [Concomitant]
     Active Substance: GABAPENTIN
  24. GRALISE [Concomitant]
     Active Substance: GABAPENTIN
  25. LIDODERM [Concomitant]
     Active Substance: LIDOCAINE
  26. NEURONTIN [Concomitant]
     Active Substance: GABAPENTIN
  27. MILK THISTLE [Concomitant]
     Active Substance: MILK THISTLE
  28. XYREM [Suspect]
     Active Substance: SODIUM OXYBATE
     Indication: INSOMNIA
     Dosage: 3 G, BID
     Route: 048
     Dates: start: 200903, end: 200905
  29. XYREM [Suspect]
     Active Substance: SODIUM OXYBATE
     Dosage: 4.5 G, BID
     Route: 048
     Dates: start: 200906, end: 2009
  30. VISTARIL [Concomitant]
     Active Substance: HYDROXYZINE PAMOATE
  31. DICLOFENAC SODIUM. [Concomitant]
     Active Substance: DICLOFENAC SODIUM
  32. TIZANIDINE HCL [Concomitant]
     Active Substance: TIZANIDINE HYDROCHLORIDE
  33. PROAIR HFA [Concomitant]
     Active Substance: ALBUTEROL SULFATE
  34. SULFAMETHOXAZOLE [Concomitant]
     Active Substance: SULFAMETHOXAZOLE
  35. N-ACETYL-L-CYSTEINE [Concomitant]
     Active Substance: ACETYLCYSTEINE
  36. ANAFRANIL [Concomitant]
     Active Substance: CLOMIPRAMINE HYDROCHLORIDE
  37. DOXYCYCLINE HYCLATE. [Concomitant]
     Active Substance: DOXYCYCLINE HYCLATE
  38. DOXEPIN [Concomitant]
     Active Substance: DOXEPIN
  39. TOPROL XL [Concomitant]
     Active Substance: METOPROLOL SUCCINATE
  40. CYMBALTA [Concomitant]
     Active Substance: DULOXETINE HYDROCHLORIDE
  41. XYREM [Suspect]
     Active Substance: SODIUM OXYBATE
     Dosage: 2.25 G, BID
     Route: 048
     Dates: start: 201608, end: 201608
  42. VALIUM [Concomitant]
     Active Substance: DIAZEPAM
  43. DONNATAL [Concomitant]
     Active Substance: ATROPINE SULFATE\HYOSCYAMINE SULFATE\PHENOBARBITAL\SCOPOLAMINE HYDROBROMIDE
  44. PAMELOR [Concomitant]
     Active Substance: NORTRIPTYLINE HYDROCHLORIDE
  45. KLONOPIN [Concomitant]
     Active Substance: CLONAZEPAM

REACTIONS (2)
  - Wrong technique in product usage process [Unknown]
  - Nausea [Not Recovered/Not Resolved]
